FAERS Safety Report 22270889 (Version 3)
Quarter: 2023Q4

REPORT INFORMATION
  Report Type: Spontaneous
  Country: US (occurrence: US)
  Receive Date: 20230501
  Receipt Date: 20231106
  Transmission Date: 20240109
  Serious: No
  Sender: FDA-Public Use
  Company Number: US-PFIZER INC-PV202300076089

PATIENT
  Age: 67 Year
  Sex: Male
  Weight: 90.72 kg

DRUGS (6)
  1. VYNDAMAX [Suspect]
     Active Substance: TAFAMIDIS
     Indication: Cardiac amyloidosis
     Dosage: 61MG CAPSULE ON PER DAY
     Route: 048
     Dates: start: 202208
  2. ENTRESTO [Suspect]
     Active Substance: SACUBITRIL\VALSARTAN
     Indication: Blood pressure abnormal
     Dosage: 49-51MG TABLETS BY MOUTH ONE TABLET IN THE MORNING AND ONE AT NIGHT
     Route: 048
     Dates: start: 202208
  3. DULOXETINE HYDROCHLORIDE [Concomitant]
     Active Substance: DULOXETINE HYDROCHLORIDE
     Indication: Depression
     Dosage: 60MG CAPSULE ONCE A DAY BY MOUTH
     Route: 048
  4. DULOXETINE HYDROCHLORIDE [Concomitant]
     Active Substance: DULOXETINE HYDROCHLORIDE
     Indication: Arthropathy
  5. ATORVASTATIN CALCIUM [Concomitant]
     Active Substance: ATORVASTATIN CALCIUM
     Indication: Blood cholesterol
     Dosage: 20MG TABLET ONCE A DAY BY MOUTH
     Route: 048
  6. BAYER ASPIRIN WITH HEART ADVANTAGE [Concomitant]
     Indication: Cardiac disorder
     Dosage: 81MG TABLET ONCE A DAY BY MOUTH
     Route: 048

REACTIONS (1)
  - Drug ineffective [Unknown]
